FAERS Safety Report 4476788-0 (Version None)
Quarter: 2004Q4

REPORT INFORMATION
  Report Type: 
  Country: None (occurrence: None)
  Receive Date: 20041013
  Receipt Date: 20040928
  Transmission Date: 20050328
  Serious: Yes (Hospitalization)
  Sender: FDA-Public Use
  Company Number: US013905

PATIENT
  Age: 43 Year
  Sex: Female
  Weight: 65.7716 kg

DRUGS (1)
  1. GABITRIL [Suspect]
     Indication: NERVOUS SYSTEM DISORDER
     Dosage: 4 MG QD ORAL
     Route: 048

REACTIONS (7)
  - DYSSTASIA [None]
  - HEART RATE DECREASED [None]
  - HYPOTENSION [None]
  - METABOLIC ENCEPHALOPATHY [None]
  - PRIMARY ADRENAL INSUFFICIENCY [None]
  - RENAL FAILURE [None]
  - TOXIC INDUCED ENCEPHALOPATHY [None]
